FAERS Safety Report 13580501 (Version 2)
Quarter: 2017Q2

REPORT INFORMATION
  Report Type: Spontaneous
  Country: US (occurrence: US)
  Receive Date: 20170525
  Receipt Date: 20170525
  Transmission Date: 20170830
  Serious: No
  Sender: FDA-Public Use
  Company Number: US-IMPAX LABORATORIES, INC-2016-IPXL-02483

PATIENT
  Sex: Female
  Weight: 52 kg

DRUGS (9)
  1. HYDROCORTISONE. [Suspect]
     Active Substance: HYDROCORTISONE
     Dosage: TABLETS, 7.5MG IN THE MORNING, 5MG AT 1PM AND 5MG AT 4PM
     Route: 048
     Dates: start: 2016
  2. HYDROCORTISONE. [Suspect]
     Active Substance: HYDROCORTISONE
     Dosage: TABLETS, 7.5MG IN THE MORNING, 5MG AT 1PM AND 2.5MG EVENING DOSE
     Route: 048
     Dates: start: 2016
  3. SYNTHROID [Concomitant]
     Active Substance: LEVOTHYROXINE SODIUM
     Indication: ADDISON^S DISEASE
  4. HYDROCORTISONE. [Suspect]
     Active Substance: HYDROCORTISONE
     Dosage: TABLETS, 7.5MG IN THE MORNING, 5MG AT 1PM, 5MG AT 4PM AND ADD 5 MG
     Route: 048
     Dates: start: 201611
  5. VIVELLE-DOT [Concomitant]
     Active Substance: ESTRADIOL
     Indication: HORMONE REPLACEMENT THERAPY
     Dosage: UNK
     Route: 065
  6. HYDROCORTISONE. [Suspect]
     Active Substance: HYDROCORTISONE
     Indication: ADDISON^S DISEASE
     Dosage: TABLETS, 7.5MG IN THE MORNING, 5MG AT 1PM AND 5MG AT 4PM
     Route: 048
     Dates: start: 201501
  7. SYNTHROID [Concomitant]
     Active Substance: LEVOTHYROXINE SODIUM
     Indication: HYPOTHYROIDISM
     Dosage: 2.5 ?G, 1 /DAY, THREE QUARTERS OF THE TABLETS
     Route: 065
     Dates: start: 2010, end: 2011
  8. FLUDROCORTISONE [Concomitant]
     Active Substance: FLUDROCORTISONE
     Indication: ADDISON^S DISEASE
     Dosage: 0.1 MG, 1 /DAY
     Route: 065
     Dates: start: 201501
  9. HYDROCORTISONE. [Suspect]
     Active Substance: HYDROCORTISONE
     Dosage: TABLETS, 7.5MG IN THE MORNING, 5MG AT 1PM, 5MG AT 4PM, ADD 5 MG AND INCREASED BY 2.5 MG
     Route: 048
     Dates: start: 2016

REACTIONS (4)
  - Tremor [Unknown]
  - Fatigue [Not Recovered/Not Resolved]
  - Sleep disorder [Recovering/Resolving]
  - Diarrhoea [Not Recovered/Not Resolved]

NARRATIVE: CASE EVENT DATE: 2016
